FAERS Safety Report 9828547 (Version 1)
Quarter: 2014Q1

REPORT INFORMATION
  Report Type: Report from Study
  Country: US (occurrence: US)
  Receive Date: 20140117
  Receipt Date: 20140117
  Transmission Date: 20141002
  Serious: Yes (Other)
  Sender: FDA-Public Use
  Company Number: US-ABBVIE-14P-163-1190096-00

PATIENT
  Age: 49 Year
  Sex: Male

DRUGS (2)
  1. HUMIRA [Suspect]
     Indication: COLITIS ULCERATIVE
     Dates: start: 20131016
  2. HUMIRA [Suspect]
     Route: 050
     Dates: start: 201312

REACTIONS (3)
  - Local swelling [Unknown]
  - Thrombosis [Unknown]
  - Colitis ulcerative [Unknown]
